FAERS Safety Report 14280653 (Version 3)
Quarter: 2018Q1

REPORT INFORMATION
  Report Type: Report from Study
  Country: KR (occurrence: KR)
  Receive Date: 20171213
  Receipt Date: 20180130
  Transmission Date: 20180508
  Serious: Yes (Other)
  Sender: FDA-Public Use
  Company Number: KR-ROCHE-2038346

PATIENT
  Age: 56 Year
  Sex: Male
  Weight: 66.4 kg

DRUGS (9)
  1. FEROBA-YOU [Concomitant]
     Route: 065
     Dates: start: 20170613
  2. NALOXONE HYDROCHLORIDE. [Concomitant]
     Active Substance: NALOXONE HYDROCHLORIDE
     Route: 065
     Dates: start: 20170616
  3. VASOZOSIN [Concomitant]
     Route: 065
     Dates: start: 201704
  4. HYTRIN [Concomitant]
     Active Substance: TERAZOSIN HYDROCHLORIDE
     Route: 065
     Dates: start: 20170615
  5. DUPHALAC EASY [Concomitant]
     Route: 065
     Dates: start: 20170610
  6. MUCOSTA [Concomitant]
     Active Substance: REBAMIPIDE
     Route: 065
     Dates: start: 20170612
  7. ATEZOLIZUMAB. [Suspect]
     Active Substance: ATEZOLIZUMAB
     Indication: COLORECTAL CANCER METASTATIC
     Dosage: FIXED DOSE OF 840 MG, ON DAY 1 OF EVERY 2-WEEK CYCLE
     Route: 042
     Dates: start: 20171121
  8. COBIMETINIB. [Suspect]
     Active Substance: COBIMETINIB
     Indication: COLORECTAL CANCER METASTATIC
     Dosage: 60 MG ORALLY ONCE DAILY FOR 3 WEEKS
     Route: 048
     Dates: start: 20171121, end: 20171201
  9. OXYCODONE HYDROCHLORIDE. [Concomitant]
     Active Substance: OXYCODONE HYDROCHLORIDE
     Route: 065
     Dates: start: 20170616

REACTIONS (1)
  - Retinal detachment [Recovered/Resolved]

NARRATIVE: CASE EVENT DATE: 20171128
